FAERS Safety Report 9217671 (Version 2)
Quarter: 2013Q2

REPORT INFORMATION
  Report Type: Spontaneous
  Country: US (occurrence: US)
  Receive Date: 20130408
  Receipt Date: 20130424
  Transmission Date: 20140414
  Serious: Yes (Other)
  Sender: FDA-Public Use
  Company Number: US-009507513-1301USA004254

PATIENT
  Age: 0 Year
  Sex: Female
  Weight: 5.9 kg

DRUGS (1)
  1. BCG VACCINE USP [Suspect]
     Indication: PROPHYLAXIS
     Dosage: UNK
     Route: 023
     Dates: start: 20130104, end: 20130104

REACTIONS (6)
  - Vaccination site erythema [Recovered/Resolved]
  - Vaccination site induration [Recovered/Resolved]
  - Vaccination site pain [Recovered/Resolved]
  - Incorrect route of drug administration [Unknown]
  - Vaccination site scab [None]
  - Product quality issue [None]
